FAERS Safety Report 21668648 (Version 1)
Quarter: 2022Q4

REPORT INFORMATION
  Report Type: Spontaneous
  Country: US (occurrence: US)
  Receive Date: 20221201
  Receipt Date: 20221201
  Transmission Date: 20230113
  Serious: No
  Sender: FDA-Public Use
  Company Number: US-SA-SAC20221129001357

PATIENT
  Sex: Female

DRUGS (1)
  1. DUPIXENT [Suspect]
     Active Substance: DUPILUMAB
     Indication: Product used for unknown indication
     Dosage: 300MG, OTHER
     Route: 058

REACTIONS (4)
  - Injection site haemorrhage [Unknown]
  - Influenza like illness [Unknown]
  - Nasopharyngitis [Unknown]
  - Injection site bruising [Unknown]
